FAERS Safety Report 6102992-1 (Version None)
Quarter: 2009Q1

REPORT INFORMATION
  Report Type: 
  Country: None (occurrence: None)
  Receive Date: 20090305
  Receipt Date: 20090224
  Transmission Date: 20090719
  Serious: Yes (Hospitalization)
  Sender: FDA-Public Use
  Company Number: PHEH2008US10639

PATIENT
  Sex: Female
  Weight: 90 kg

DRUGS (4)
  1. EXJADE [Suspect]
     Indication: IRON METABOLISM DISORDER
     Dosage: 1750 MG, QD
     Route: 048
     Dates: start: 20080612, end: 20080910
  2. EXJADE [Suspect]
     Indication: IRON OVERLOAD
  3. HYDREA [Concomitant]
     Indication: SICKLE CELL ANAEMIA
     Dosage: 500 MG, QD
     Route: 048
  4. LORTAB [Concomitant]
     Indication: SICKLE CELL ANAEMIA
     Dosage: 1-2 TABS PO QID
     Route: 048

REACTIONS (5)
  - CONSTIPATION [None]
  - DEHYDRATION [None]
  - DIARRHOEA [None]
  - NAUSEA [None]
  - VOMITING [None]
